FAERS Safety Report 24256788 (Version 1)
Quarter: 2024Q3

REPORT INFORMATION
  Report Type: Report from Study
  Country: NL (occurrence: NL)
  Receive Date: 20240828
  Receipt Date: 20240828
  Transmission Date: 20241017
  Serious: Yes (Other)
  Sender: ROCHE
  Company Number: NL-ROCHE-10000058260

PATIENT

DRUGS (3)
  1. MYCOPHENOLATE MOFETIL [Suspect]
     Active Substance: MYCOPHENOLATE MOFETIL
     Indication: Methylmalonic acidaemia
     Route: 065
  2. TACROLIMUS [Suspect]
     Active Substance: TACROLIMUS
     Indication: Methylmalonic acidaemia
     Dosage: 5 AND 8 NG/ML
     Route: 065
  3. PREDNISOLONE [Suspect]
     Active Substance: PREDNISOLONE
     Indication: Methylmalonic acidaemia
     Route: 065

REACTIONS (11)
  - Sepsis [Unknown]
  - Transplant rejection [Unknown]
  - Cytomegalovirus infection [Unknown]
  - Hepatic artery thrombosis [Unknown]
  - Metabolic disorder [Unknown]
  - Small-for-size liver syndrome [Unknown]
  - Intellectual disability [Unknown]
  - Short stature [Unknown]
  - Nervous system disorder [Unknown]
  - Renal impairment [Unknown]
  - Biliary anastomosis complication [Unknown]
